FAERS Safety Report 23521919 (Version 1)
Quarter: 2024Q1

REPORT INFORMATION
  Report Type: Spontaneous
  Country: GB (occurrence: GB)
  Receive Date: 20240214
  Receipt Date: 20240214
  Transmission Date: 20240410
  Serious: Yes (Other)
  Sender: FDA-Public Use
  Company Number: GB-SUN PHARMACEUTICAL INDUSTRIES LTD-2024R1-431077

PATIENT
  Age: 35 Year
  Sex: Female

DRUGS (3)
  1. VALPROIC ACID [Suspect]
     Active Substance: VALPROIC ACID
     Indication: Anxiety
     Dosage: UNK
     Route: 065
  2. VALPROIC ACID [Suspect]
     Active Substance: VALPROIC ACID
     Indication: Depression
  3. VALPROIC ACID [Suspect]
     Active Substance: VALPROIC ACID
     Indication: Schizoaffective disorder

REACTIONS (1)
  - Osteoporosis [Unknown]
